FAERS Safety Report 26166463 (Version 1)
Quarter: 2025Q4

REPORT INFORMATION
  Report Type: Spontaneous
  Country: CN (occurrence: CN)
  Receive Date: 20251217
  Receipt Date: 20251217
  Transmission Date: 20260117
  Serious: Yes (Other)
  Sender: ROCHE
  Company Number: CN-ROCHE-10000459963

PATIENT

DRUGS (1)
  1. XOFLUZA [Suspect]
     Active Substance: BALOXAVIR MARBOXIL
     Indication: Influenza A virus test positive
     Route: 048

REACTIONS (5)
  - Body temperature increased [Unknown]
  - Abdominal discomfort [Unknown]
  - Faeces hard [Unknown]
  - Hyperpyrexia [Unknown]
  - Drug ineffective [Unknown]
